FAERS Safety Report 20690523 (Version 1)
Quarter: 2022Q2

REPORT INFORMATION
  Report Type: Spontaneous
  Country: US (occurrence: None)
  Receive Date: 20220406
  Receipt Date: 20220406
  Transmission Date: 20220721
  Serious: Yes (Death)
  Sender: FDA-Public Use
  Company Number: None

PATIENT
  Sex: Male

DRUGS (5)
  1. MYOBLOC [Suspect]
     Active Substance: RIMABOTULINUMTOXINB
     Indication: Salivary gland disorder
     Dosage: 2,500  UNIT /0.5ML ? ?INJECT UP TO 2,500 UNITS INTO SALIVARY GLANDS EVERY 12 WEEKS?
     Route: 030
     Dates: start: 20201016
  2. DONEPEZIL [Concomitant]
     Active Substance: DONEPEZIL
  3. DUTAST/TAMSU [Concomitant]
  4. NAMENDA [Concomitant]
     Active Substance: MEMANTINE HYDROCHLORIDE
  5. SINEMET [Concomitant]
     Active Substance: CARBIDOPA\LEVODOPA

REACTIONS (1)
  - Death [None]
